FAERS Safety Report 5704515-5 (Version None)
Quarter: 2008Q2

REPORT INFORMATION
  Report Type: 
  Country: None (occurrence: None)
  Receive Date: 20080411
  Receipt Date: 20080411
  Transmission Date: 20081010
  Serious: Yes (Other)
  Sender: FDA-Public Use
  Company Number: None

PATIENT
  Age: 52 Year
  Sex: Female
  Weight: 99.7913 kg

DRUGS (1)
  1. LEVAQUIN [Suspect]
     Indication: PHARYNGITIS STREPTOCOCCAL
     Dosage: 750 MG 1 A DAY 10 DAYS PO
     Route: 048
     Dates: start: 20080324, end: 20080404

REACTIONS (1)
  - MUSCULOSKELETAL PAIN [None]
